FAERS Safety Report 9884520 (Version 3)
Quarter: 2015Q1

REPORT INFORMATION
  Report Type: Spontaneous
  Country: US (occurrence: US)
  Receive Date: 20140210
  Receipt Date: 20150222
  Transmission Date: 20150721
  Serious: No
  Sender: FDA-Public Use
  Company Number: US-ALLERGAN-1319514US

PATIENT
  Age: 51 Year
  Sex: Female

DRUGS (4)
  1. BIOIDENTICALS NOS [Concomitant]
     Indication: PRODUCT USED FOR UNKNOWN INDICATION
  2. BOTOX COSMETIC [Suspect]
     Active Substance: ONABOTULINUMTOXINA
     Indication: SKIN WRINKLING
  3. ESTROGEN [Concomitant]
     Active Substance: ESTRONE\SUS SCROFA OVARY
  4. BOTOX COSMETIC [Suspect]
     Active Substance: ONABOTULINUMTOXINA
     Indication: SKIN WRINKLING
     Dosage: 28 UNITS, SINGLE
     Route: 030
     Dates: start: 20131202, end: 20131202

REACTIONS (6)
  - Sinusitis [Recovered/Resolved]
  - Skin tightness [Recovered/Resolved]
  - Facial paresis [Recovered/Resolved]
  - Urinary tract infection [Recovered/Resolved]
  - Eyelid ptosis [Recovered/Resolved]
  - Pyrexia [Recovered/Resolved]
